FAERS Safety Report 6960708 (Version 3)
Quarter: 2013Q4

REPORT INFORMATION
  Report Type: Spontaneous
  Country: US (occurrence: None)
  Receive Date: 20090325
  Receipt Date: 20131220
  Transmission Date: 20140711
  Serious: Yes (Hospitalization, Other)
  Sender: FDA-Public Use
  Company Number: 2009S1002468

PATIENT
  Age: 71 Year
  Sex: Female

DRUGS (5)
  1. SODIUM PHOSPHATE [Suspect]
     Indication: COLONOSCOPY
     Dosage: 90ML, 2 IN 24 HOURS ORAL
     Route: 048
     Dates: start: 20060822, end: 20060823
  2. CALTRATE (COLECALCIFEROL, CALCIUM CARBONATE) [Concomitant]
  3. ZETIA (EZETIMIBE) [Concomitant]
  4. EVISTA (RALOXIFENE HYDROCHLORIDE) [Concomitant]
  5. CLARINEX (DESLORATADINE) [Concomitant]

REACTIONS (4)
  - Renal failure [None]
  - Hyperphosphataemia [None]
  - Renal transplant [None]
  - Toxicity to various agents [None]
